FAERS Safety Report 16161737 (Version 9)
Quarter: 2021Q2

REPORT INFORMATION
  Report Type: Spontaneous
  Country: US (occurrence: US)
  Receive Date: 20190405
  Receipt Date: 20210621
  Transmission Date: 20210716
  Serious: No
  Sender: FDA-Public Use
  Company Number: US-PFIZER INC-2019101727

PATIENT
  Age: 67 Year
  Sex: Female
  Weight: 51.71 kg

DRUGS (1)
  1. TALZENNA [Suspect]
     Active Substance: TALAZOPARIB TOSYLATE
     Indication: BREAST CANCER STAGE IV
     Dosage: 1 MG, 1X/DAY AT NIGHT
     Route: 048
     Dates: start: 20190305

REACTIONS (10)
  - Gastrooesophageal reflux disease [Unknown]
  - Neoplasm progression [Unknown]
  - Vomiting [Recovered/Resolved]
  - Bacterial vaginosis [Not Recovered/Not Resolved]
  - Product dose omission issue [Unknown]
  - Alopecia [Unknown]
  - Nervous system disorder [Recovered/Resolved]
  - Decreased immune responsiveness [Recovering/Resolving]
  - Fatigue [Unknown]
  - Madarosis [Unknown]

NARRATIVE: CASE EVENT DATE: 2019
